FAERS Safety Report 6897912-6 (Version None)
Quarter: 2010Q3

REPORT INFORMATION
  Report Type: 
  Country: None (occurrence: None)
  Receive Date: 20100802
  Receipt Date: 20070815
  Transmission Date: 20110219
  Serious: Yes (Other)
  Sender: FDA-Public Use
  Company Number: US-PFIZER INC-2007025728

PATIENT
  Sex: Male
  Weight: 97.5 kg

DRUGS (6)
  1. LYRICA [Suspect]
     Indication: NERVE INJURY
     Route: 048
     Dates: start: 20070330
  2. LYRICA [Suspect]
     Indication: PAIN
  3. LYRICA [Suspect]
     Indication: ASTHENIA
  4. TOPROL-XL [Concomitant]
  5. MAGNESIUM [Concomitant]
  6. POTASSIUM [Concomitant]

REACTIONS (3)
  - CERVICAL SPINAL STENOSIS [None]
  - DIZZINESS [None]
  - FEELING ABNORMAL [None]
